FAERS Safety Report 14662283 (Version 1)
Quarter: 2018Q1

REPORT INFORMATION
  Report Type: Spontaneous
  Country: IT (occurrence: IT)
  Receive Date: 20180321
  Receipt Date: 20180321
  Transmission Date: 20180509
  Serious: Yes (Other)
  Sender: FDA-Public Use
  Company Number: IT-CIPLA LTD.-2018IT11614

PATIENT

DRUGS (2)
  1. GEMCITABINE [Suspect]
     Active Substance: GEMCITABINE\GEMCITABINE HYDROCHLORIDE
     Indication: BILIARY NEOPLASM
     Dosage: 1700 MG, CYCLICAL
     Route: 042
     Dates: start: 20170719
  2. CISPLATIN ACCORD [Concomitant]
     Active Substance: CISPLATIN
     Indication: BILIARY NEOPLASM
     Dosage: 44 MG, UNK
     Route: 042
     Dates: start: 20170719, end: 20170927

REACTIONS (1)
  - Hyperpyrexia [Recovered/Resolved]

NARRATIVE: CASE EVENT DATE: 20170927
